FAERS Safety Report 7978102-2 (Version None)
Quarter: 2011Q4

REPORT INFORMATION
  Report Type: 
  Country: None (occurrence: None)
  Receive Date: 20111212
  Receipt Date: 20111212
  Transmission Date: 20120403
  Serious: No
  Sender: FDA-Public Use
  Company Number: None

PATIENT
  Age: 12 Year
  Sex: Female

DRUGS (1)
  1. NUTROPIN AQ [Suspect]
     Dosage: 1.5 MG DAILY SQ
     Route: 058
     Dates: start: 20110215

REACTIONS (1)
  - LOOSE TOOTH [None]
